FAERS Safety Report 18361075 (Version 5)
Quarter: 2024Q1

REPORT INFORMATION
  Report Type: Spontaneous
  Country: US (occurrence: US)
  Receive Date: 20201008
  Receipt Date: 20240109
  Transmission Date: 20240410
  Serious: No
  Sender: FDA-Public Use
  Company Number: US-PFIZER INC-2020385631

PATIENT
  Age: 80 Year
  Sex: Female

DRUGS (1)
  1. IBRANCE [Suspect]
     Active Substance: PALBOCICLIB
     Dosage: 100 MG, CYCLIC (DAILY 1 CAPSULE 7 THROUGH 21 DAYS)

REACTIONS (6)
  - Product dose omission issue [Unknown]
  - Neoplasm progression [Unknown]
  - Alopecia [Unknown]
  - Hair growth abnormal [Unknown]
  - Off label use [Unknown]
  - Product use issue [Unknown]
